FAERS Safety Report 8166062-3 (Version None)
Quarter: 2012Q1

REPORT INFORMATION
  Report Type: 
  Country: None (occurrence: None)
  Receive Date: 20120227
  Receipt Date: 20110317
  Transmission Date: 20120608
  Serious: No
  Sender: FDA-Public Use
  Company Number: US-MYLANLABS-2011S1004377

PATIENT
  Age: 45 Year
  Sex: Female

DRUGS (5)
  1. AMNESTEEM [Suspect]
     Indication: SYSTEMIC LUPUS ERYTHEMATOSUS
     Route: 048
     Dates: start: 20110103, end: 20110302
  2. PLAQUENIL [Concomitant]
  3. PREDNISONE TAB [Concomitant]
  4. CLOBETASOL PROPIONATE [Concomitant]
     Route: 061
  5. AMNESTEEM [Suspect]
     Indication: ACNE
     Route: 048
     Dates: start: 20110103, end: 20110302

REACTIONS (1)
  - DRY SKIN [None]
